FAERS Safety Report 24889821 (Version 3)
Quarter: 2025Q1

REPORT INFORMATION
  Report Type: Spontaneous
  Country: DE (occurrence: DE)
  Receive Date: 20250127
  Receipt Date: 20250304
  Transmission Date: 20250409
  Serious: Yes (Death, Other)
  Sender: GILEAD
  Company Number: DE-PEI-202500001210

PATIENT
  Age: 76 Year
  Sex: Male

DRUGS (2)
  1. TECARTUS [Suspect]
     Active Substance: BREXUCABTAGENE AUTOLEUCEL
     Indication: Mantle cell lymphoma
     Route: 065
     Dates: start: 20240923
  2. CORTISONE [Suspect]
     Active Substance: CORTISONE
     Indication: Product used for unknown indication
     Route: 065

REACTIONS (4)
  - Asthenia [Fatal]
  - Dependence on respirator [Recovered/Resolved]
  - Dialysis [Recovered/Resolved]
  - Immune effector cell-associated neurotoxicity syndrome [Recovered/Resolved]

NARRATIVE: CASE EVENT DATE: 20240927
